FAERS Safety Report 6936248-1 (Version None)
Quarter: 2010Q3

REPORT INFORMATION
  Report Type: 
  Country: None (occurrence: None)
  Receive Date: 20100823
  Receipt Date: 20100811
  Transmission Date: 20110219
  Serious: Yes (Hospitalization)
  Sender: FDA-Public Use
  Company Number: IT-PFIZER INC-2010091560

PATIENT
  Age: 94 Year
  Sex: Female

DRUGS (1)
  1. LYRICA [Suspect]
     Indication: ANXIETY
     Dosage: 300 MG, DAILY
     Route: 048
     Dates: start: 20090101, end: 20100428

REACTIONS (2)
  - HEAD INJURY [None]
  - SYNCOPE [None]
